FAERS Safety Report 9129113 (Version 1)
Quarter: 2013Q1

REPORT INFORMATION
  Report Type: Spontaneous
  Country: US (occurrence: US)
  Receive Date: 20130228
  Receipt Date: 20130228
  Transmission Date: 20140127
  Serious: No
  Sender: FDA-Public Use
  Company Number: US-ABBOTT-12P-163-1022857-00

PATIENT
  Age: 71 Year
  Sex: Male
  Weight: 69.01 kg

DRUGS (2)
  1. ANDROGEL [Suspect]
     Indication: BLOOD TESTOSTERONE DECREASED
     Dates: start: 2012
  2. METFORMIN [Concomitant]
     Indication: BLOOD GLUCOSE

REACTIONS (3)
  - Pain in extremity [Unknown]
  - Discomfort [Recovered/Resolved]
  - Muscular weakness [Unknown]
